FAERS Safety Report 7426929-8 (Version None)
Quarter: 2011Q2

REPORT INFORMATION
  Report Type: 
  Country: None (occurrence: None)
  Receive Date: 20110420
  Receipt Date: 20110412
  Transmission Date: 20111010
  Serious: Yes (Other)
  Sender: FDA-Public Use
  Company Number: US-PFIZER INC-2011084268

PATIENT
  Age: 54 Year
  Sex: Female

DRUGS (6)
  1. ZOLPIDEM [Suspect]
     Dosage: 10 MG, UNK
  2. QUETIAPINE [Suspect]
     Dosage: 800 MG, UNK
  3. SERTRALINE HYDROCHLORIDE [Suspect]
     Dosage: 250 MG, UNK
  4. SELEGILINE [Suspect]
     Indication: PARKINSON'S DISEASE
     Dosage: 5 MG, UNK
  5. CARBIDOPA + LEVODOPA [Suspect]
     Indication: PARKINSON'S DISEASE
     Dosage: 75/100 MG, UNK
  6. CLONAZEPAM [Suspect]
     Dosage: 1.0 MG, UNK

REACTIONS (2)
  - SCHIZOPHRENIA [None]
  - PARKINSON'S DISEASE [None]
